FAERS Safety Report 8605594-8 (Version None)
Quarter: 2012Q3

REPORT INFORMATION
  Report Type: 
  Country: None (occurrence: None)
  Receive Date: 20120807
  Receipt Date: 20120717
  Transmission Date: 20120928
  Serious: Yes (Hospitalization, Other)
  Sender: FDA-Public Use
  Company Number: LEVE201200009

PATIENT
  Age: 33 Year
  Sex: Female

DRUGS (2)
  1. PHENYTOIN [Concomitant]
  2. LEVETIRACETAM [Suspect]
     Indication: PARTIAL SEIZURES
     Dosage: 500 MG

REACTIONS (3)
  - ANGIOEDEMA [None]
  - RASH MACULO-PAPULAR [None]
  - RASH GENERALISED [None]
